FAERS Safety Report 4613454-2 (Version None)
Quarter: 2005Q1

REPORT INFORMATION
  Report Type: 
  Country: None (occurrence: None)
  Receive Date: 20050316
  Receipt Date: 20050308
  Transmission Date: 20050727
  Serious: Yes (Death, Life-Threatening, Hospitalization)
  Sender: FDA-Public Use
  Company Number: PL-2005-001628

PATIENT
  Age: 58 Year
  Sex: Female
  Weight: 63 kg

DRUGS (6)
  1. FLUDARA [Suspect]
     Indication: CHRONIC LYMPHOCYTIC LEUKAEMIA
     Dosage: 25 MG/M2, 1X/DAY, INTRAVENOUS
     Route: 042
     Dates: start: 20041130, end: 20050105
  2. NYSTATIN [Concomitant]
  3. PLATELETS [Concomitant]
  4. ETAMSILATE                   (ETAMSILATE) [Concomitant]
  5. BACTRIM [Concomitant]
  6. ACYCLOVIR [Concomitant]

REACTIONS (19)
  - ANTI-PLATELET ANTIBODY POSITIVE [None]
  - ARTERIOSCLEROSIS [None]
  - AUTOIMMUNE THROMBOCYTOPENIA [None]
  - COUGH [None]
  - GENERAL PHYSICAL HEALTH DETERIORATION [None]
  - HAEMOGLOBIN DECREASED [None]
  - HAEMOPTYSIS [None]
  - HEPATOSPLENOMEGALY [None]
  - INTERSTITIAL LUNG DISEASE [None]
  - MALAISE [None]
  - MYOCARDIAL FIBROSIS [None]
  - PLEURISY [None]
  - PSEUDOMONAL SEPSIS [None]
  - PYREXIA [None]
  - SEPTIC SHOCK [None]
  - THERAPY NON-RESPONDER [None]
  - TRACHEOBRONCHITIS [None]
  - VIRAL INFECTION [None]
  - WHITE BLOOD CELL COUNT DECREASED [None]
